FAERS Safety Report 11183989 (Version 1)
Quarter: 2015Q2

REPORT INFORMATION
  Report Type: Spontaneous
  Country: US (occurrence: US)
  Receive Date: 20150612
  Receipt Date: 20150612
  Transmission Date: 20150821
  Serious: Yes (Other)
  Sender: FDA-Public Use
  Company Number: US-CIPLA LTD.-2015US04608

PATIENT

DRUGS (3)
  1. PACLITAXEL. [Suspect]
     Active Substance: PACLITAXEL
     Indication: NEOPLASM
     Dosage: 200 MG/M2 ON DAY 1 OF THE 3-WEEK CYCLE
     Route: 042
  2. AMG 386 [Suspect]
     Active Substance: TREBANANIB
     Indication: NEOPLASM
     Dosage: 10 MG/KG, WEEKLY
     Route: 042
  3. CARBOPLATIN. [Suspect]
     Active Substance: CARBOPLATIN
     Indication: NEOPLASM
     Dosage: AUC 6 MG/ML.MIN ON DAY 1 OF THE 3-WEEK CYCLE

REACTIONS (1)
  - Proteinuria [Unknown]
